FAERS Safety Report 8193026-6 (Version None)
Quarter: 2012Q1

REPORT INFORMATION
  Report Type: 
  Country: None (occurrence: None)
  Receive Date: 20120221
  Receipt Date: 20111101
  Transmission Date: 20120608
  Serious: No
  Sender: FDA-Public Use
  Company Number: 1000025134

PATIENT
  Age: 69 Year
  Sex: Male

DRUGS (18)
  1. VIIBRYD [Suspect]
     Indication: DEPRESSION
     Dosage: 10 MG (10 MG,1 IN 1 D),ORAL: 20 MG (20 MG,1 IN 1 D), ORAL : 40 MG (40 MG,1 IN 1 D),ORAL
     Route: 048
     Dates: start: 20110901
  2. VIIBRYD [Suspect]
     Indication: DEPRESSION
     Dosage: 10 MG (10 MG,1 IN 1 D),ORAL: 20 MG (20 MG,1 IN 1 D), ORAL : 40 MG (40 MG,1 IN 1 D),ORAL
     Route: 048
     Dates: start: 20110101, end: 20110901
  3. VIIBRYD [Suspect]
     Indication: DEPRESSION
     Dosage: 10 MG (10 MG,1 IN 1 D),ORAL: 20 MG (20 MG,1 IN 1 D), ORAL : 40 MG (40 MG,1 IN 1 D),ORAL
     Route: 048
     Dates: start: 20110801, end: 20110101
  4. HUMALOG [Concomitant]
  5. LEVOTHYROXINE SODIUM [Concomitant]
  6. CITALOPRAM HYDROBROMIDE [Concomitant]
  7. FENOFIBRATE [Concomitant]
  8. LOVASTATIN [Concomitant]
  9. PROPRANOLOL [Concomitant]
  10. DOXYCYCLINE HYCLATE [Concomitant]
  11. FUROSEMIDE [Concomitant]
  12. POTASSIUM CHLORIDE [Concomitant]
  13. GABAPENTIN [Concomitant]
  14. TOBRADEX [Concomitant]
  15. ROPINIROLE [Concomitant]
  16. ALPRAZOLAM [Concomitant]
  17. ZOLPIDEM [Concomitant]
  18. OXCARBAZEPINE [Concomitant]

REACTIONS (2)
  - ABNORMAL DREAMS [None]
  - MUSCLE TWITCHING [None]
